FAERS Safety Report 5705546-1 (Version None)
Quarter: 2008Q2

REPORT INFORMATION
  Report Type: 
  Country: None (occurrence: None)
  Receive Date: 20080415
  Receipt Date: 20080404
  Transmission Date: 20081010
  Serious: Yes (Other)
  Sender: FDA-Public Use
  Company Number: US-ROCHE-550053

PATIENT
  Sex: Male

DRUGS (4)
  1. PEG-INTERFERON A-2A (RO 25-8310) [Suspect]
     Dosage: FORM: PRE-FILLED SYRINGE
     Route: 065
     Dates: start: 20071001, end: 20080201
  2. PEG-INTERFERON A-2A (RO 25-8310) [Suspect]
     Dosage: FORM: PRE-FILLED SYRINGE
     Route: 065
  3. RIBAVIRIN [Suspect]
     Dosage: FORM: PILLS
     Route: 065
     Dates: start: 20071001, end: 20080219
  4. RIBAVIRIN [Suspect]
     Dosage: FORM: PILLS.  1200 MG DIVIDED DOSES
     Route: 065

REACTIONS (3)
  - DEVICE LEAKAGE [None]
  - NO ADVERSE EVENT [None]
  - SPINAL FUSION SURGERY [None]
